FAERS Safety Report 11329865 (Version 2)
Quarter: 2015Q3

REPORT INFORMATION
  Report Type: Spontaneous
  Country: US (occurrence: US)
  Receive Date: 20150803
  Receipt Date: 20150811
  Transmission Date: 20151125
  Serious: No
  Sender: FDA-Public Use
  Company Number: US-ASTRAZENECA-2015SE72070

PATIENT
  Age: 25297 Day
  Sex: Male

DRUGS (4)
  1. METFORMIN [Concomitant]
     Active Substance: METFORMIN HYDROCHLORIDE
     Indication: DIABETES MELLITUS
     Route: 048
  2. LISINOPRIL. [Suspect]
     Active Substance: LISINOPRIL
     Indication: HYPERTENSION
     Route: 048
  3. CIALIS [Concomitant]
     Active Substance: TADALAFIL
     Indication: MICTURITION DISORDER
     Route: 048
  4. BYDUREON [Suspect]
     Active Substance: EXENATIDE
     Indication: TYPE 1 DIABETES MELLITUS
     Route: 058
     Dates: start: 20150401

REACTIONS (4)
  - Malaise [Recovered/Resolved with Sequelae]
  - Abdominal pain upper [Unknown]
  - Influenza [Recovered/Resolved with Sequelae]
  - Eructation [Unknown]

NARRATIVE: CASE EVENT DATE: 20150604
